FAERS Safety Report 6251342-9 (Version None)
Quarter: 2009Q2

REPORT INFORMATION
  Report Type: 
  Country: None (occurrence: None)
  Receive Date: 20090630
  Receipt Date: 20090622
  Transmission Date: 20091009
  Serious: Yes (Death)
  Sender: FDA-Public Use
  Company Number: A0784659A

PATIENT
  Sex: Male
  Weight: 65 kg

DRUGS (3)
  1. SERETIDE [Suspect]
     Dosage: 2PUFF TWICE PER DAY
     Route: 055
     Dates: start: 20080701, end: 20090427
  2. CELESTAMINE [Concomitant]
  3. MICARDIS [Concomitant]

REACTIONS (3)
  - HYPERTENSION [None]
  - INFLUENZA [None]
  - RESPIRATORY FAILURE [None]
